FAERS Safety Report 20863351 (Version 2)
Quarter: 2022Q2

REPORT INFORMATION
  Report Type: Spontaneous
  Country: US (occurrence: US)
  Receive Date: 20220523
  Receipt Date: 20220614
  Transmission Date: 20220720
  Serious: Yes (Other)
  Sender: FDA-Public Use
  Company Number: US-ELI_LILLY_AND_COMPANY-US202205005851

PATIENT
  Sex: Female

DRUGS (1)
  1. TRULICITY [Suspect]
     Active Substance: DULAGLUTIDE
     Indication: Type 2 diabetes mellitus
     Dosage: 3 MG, UNKNOWN
     Route: 058
     Dates: start: 2019

REACTIONS (6)
  - Parkinson^s disease [Unknown]
  - Metastatic neoplasm [Unknown]
  - Thyroid disorder [Unknown]
  - Myopia [Not Recovered/Not Resolved]
  - Visual impairment [Unknown]
  - Diplopia [Not Recovered/Not Resolved]
